FAERS Safety Report 14248974 (Version 2)
Quarter: 2018Q3

REPORT INFORMATION
  Report Type: Report from Study
  Country: AR (occurrence: AR)
  Receive Date: 20171204
  Receipt Date: 20180904
  Transmission Date: 20181010
  Serious: Yes (Death, Life-Threatening)
  Sender: FDA-Public Use
  Company Number: PHHY2017AR178542

PATIENT
  Sex: Male

DRUGS (1)
  1. ENTRESTO [Suspect]
     Active Substance: SACUBITRIL\VALSARTAN
     Indication: CARDIAC FAILURE
     Dosage: 2 DF (100 MG), QD
     Route: 065

REACTIONS (3)
  - Cardiac disorder [Fatal]
  - Inappropriate schedule of drug administration [Unknown]
  - Pain [Not Recovered/Not Resolved]
